FAERS Safety Report 18020211 (Version 1)
Quarter: 2020Q3

REPORT INFORMATION
  Report Type: Spontaneous
  Country: US (occurrence: US)
  Receive Date: 20200714
  Receipt Date: 20200714
  Transmission Date: 20201103
  Serious: Yes (Death)
  Sender: FDA-Public Use
  Company Number: None

PATIENT
  Age: 70 Year
  Sex: Female
  Weight: 83.1 kg

DRUGS (10)
  1. CISATRACURIUM. [Concomitant]
     Active Substance: CISATRACURIUM
     Dates: start: 20200628, end: 20200630
  2. REMDESIVIR. [Suspect]
     Active Substance: REMDESIVIR
     Indication: COVID-19
     Route: 041
     Dates: start: 20200628, end: 20200703
  3. NOREPINEPHRINE. [Concomitant]
     Active Substance: NOREPINEPHRINE
     Dates: start: 20200629, end: 20200711
  4. PROPOFOL. [Concomitant]
     Active Substance: PROPOFOL
     Dates: start: 20200629, end: 20200711
  5. CARBOXYMETHYLCELLULOSE OPHTHALMIC DROPS [Concomitant]
     Dates: start: 20200628, end: 20200703
  6. INSULIN [Concomitant]
     Active Substance: INSULIN NOS
     Dates: start: 20200625, end: 20200702
  7. ENOXAPARIN [Concomitant]
     Active Substance: ENOXAPARIN
     Dates: start: 20200626, end: 20200710
  8. FENTANYL. [Concomitant]
     Active Substance: FENTANYL
     Dates: start: 20200628, end: 20200710
  9. REMDESIVIR. [Suspect]
     Active Substance: REMDESIVIR
     Indication: COVID-19
     Route: 041
     Dates: start: 20200626, end: 20200627
  10. HYDRALAZINE [Concomitant]
     Active Substance: HYDRALAZINE HYDROCHLORIDE
     Dates: start: 20200702, end: 20200704

REACTIONS (1)
  - Pyrexia [None]

NARRATIVE: CASE EVENT DATE: 20200711
